FAERS Safety Report 19934510 (Version 2)
Quarter: 2021Q4

REPORT INFORMATION
  Report Type: Spontaneous
  Country: CZ (occurrence: CZ)
  Receive Date: 20211008
  Receipt Date: 20211014
  Transmission Date: 20220303
  Serious: Yes (Other)
  Sender: FDA-Public Use
  Company Number: CZ-PUMA BIOTECHNOLOGY, LTD.-2021-PUM-CZ004460

PATIENT

DRUGS (2)
  1. NERLYNX [Suspect]
     Active Substance: NERATINIB
     Indication: Breast cancer
     Dosage: 240 MG PER DAY
     Route: 048
     Dates: start: 202104
  2. NERLYNX [Suspect]
     Active Substance: NERATINIB
     Dosage: GRADUAL REDUCTION OF THE DOSE TO 160 MG
     Route: 048

REACTIONS (4)
  - Weight decreased [Unknown]
  - Loss of personal independence in daily activities [Unknown]
  - Diarrhoea [Recovering/Resolving]
  - Drug intolerance [Recovered/Resolved]

NARRATIVE: CASE EVENT DATE: 20210101
